FAERS Safety Report 21692374 (Version 1)
Quarter: 2022Q4

REPORT INFORMATION
  Report Type: Spontaneous
  Country: CN (occurrence: CN)
  Receive Date: 20221207
  Receipt Date: 20221207
  Transmission Date: 20230112
  Serious: Yes (Life-Threatening, Hospitalization, Other)
  Sender: FDA-Public Use
  Company Number: CN-PFIZER INC-202201340628

PATIENT
  Age: 15 Year
  Sex: Female

DRUGS (29)
  1. METHOTREXATE SODIUM [Suspect]
     Active Substance: METHOTREXATE SODIUM
     Indication: Graft versus host disease
     Dosage: 15 MG/M2, DAILY (DAY +1)
  2. METHOTREXATE SODIUM [Suspect]
     Active Substance: METHOTREXATE SODIUM
     Dosage: 10 MG/M2,DAILY (+3, +6),
  3. PREDNISONE [Concomitant]
     Active Substance: PREDNISONE
     Indication: Immunosuppression
     Dosage: UNK
  4. CYCLOSPORINE [Concomitant]
     Active Substance: CYCLOSPORINE
     Indication: Immunosuppression
     Dosage: UNK
  5. DANAZOL [Concomitant]
     Active Substance: DANAZOL
     Dosage: UNK
  6. PIPERACILLIN SODIUM\TAZOBACTAM SODIUM [Concomitant]
     Active Substance: PIPERACILLIN SODIUM\TAZOBACTAM SODIUM
     Indication: Lower respiratory tract infection
     Dosage: UNK
  7. CEFOPERAZONE\SULBACTAM [Concomitant]
     Active Substance: CEFOPERAZONE\SULBACTAM
     Indication: Lower respiratory tract infection
     Dosage: UNK
  8. LEVOFLOXACIN [Concomitant]
     Active Substance: LEVOFLOXACIN
     Indication: Lower respiratory tract infection
     Dosage: UNK
  9. FOSFOMYCIN [Concomitant]
     Active Substance: FOSFOMYCIN
     Indication: Infection
     Dosage: UNK
  10. POLYMYXIN [Concomitant]
     Active Substance: POLYMYXIN
     Indication: Infection
     Dosage: UNK
  11. MEROPENEM [Concomitant]
     Active Substance: MEROPENEM
     Indication: Infection
     Dosage: UNK
  12. VORICONAZOLE [Concomitant]
     Active Substance: VORICONAZOLE
     Indication: Infection
     Dosage: UNK
  13. MICAFUNGIN [Concomitant]
     Active Substance: MICAFUNGIN
     Indication: Infection
     Dosage: UNK
  14. AVIBACTAM SODIUM/CEFTAZIDIME [Concomitant]
     Indication: Sepsis
     Dosage: (2.5 G/KG I.V. Q8H)
     Route: 042
  15. AVIBACTAM SODIUM/CEFTAZIDIME [Concomitant]
     Indication: Haematemesis
  16. AVIBACTAM SODIUM/CEFTAZIDIME [Concomitant]
     Indication: Shock haemorrhagic
  17. FOSFOMYCIN [Concomitant]
     Active Substance: FOSFOMYCIN
     Indication: Sepsis
     Dosage: 4 G, 2X/DAY
     Route: 042
  18. FOSFOMYCIN [Concomitant]
     Active Substance: FOSFOMYCIN
     Indication: Haematemesis
  19. FOSFOMYCIN [Concomitant]
     Active Substance: FOSFOMYCIN
     Indication: Shock haemorrhagic
  20. VORICONAZOLE [Concomitant]
     Active Substance: VORICONAZOLE
     Indication: Sepsis
     Dosage: CONTINUOUS INFUSION
  21. VORICONAZOLE [Concomitant]
     Active Substance: VORICONAZOLE
     Indication: Haematemesis
  22. VORICONAZOLE [Concomitant]
     Active Substance: VORICONAZOLE
     Indication: Shock haemorrhagic
  23. AMPHOTERICIN B [Concomitant]
     Active Substance: AMPHOTERICIN B
     Indication: Sepsis
     Dosage: UNK
  24. AMPHOTERICIN B [Concomitant]
     Active Substance: AMPHOTERICIN B
     Indication: Haematemesis
  25. AMPHOTERICIN B [Concomitant]
     Active Substance: AMPHOTERICIN B
     Indication: Shock haemorrhagic
  26. LAPINE T-LYMPHOCYTE IMMUNE GLOBULIN [Concomitant]
     Active Substance: LAPINE T-LYMPHOCYTE IMMUNE GLOBULIN
     Dosage: 2.5 MG/KG (ON DAY -5 TO DAY -2)
     Dates: start: 20191225, end: 20191229
  27. CYCLOPHOSPHAMIDE [Concomitant]
     Active Substance: CYCLOPHOSPHAMIDE
     Dosage: 50 MG/KG, DAILY (ON DAYS -5 TO -2)
     Dates: start: 20191225, end: 20191229
  28. MYCOPHENOLIC ACID [Concomitant]
     Active Substance: MYCOPHENOLIC ACID
     Indication: Graft versus host disease
     Dosage: (DAY +7 TO +45),
  29. RUXOLITINIB [Concomitant]
     Active Substance: RUXOLITINIB
     Indication: Graft versus host disease
     Dosage: 5 MG, 2X/DAY

REACTIONS (1)
  - Haematotoxicity [Unknown]
